FAERS Safety Report 24786178 (Version 1)
Quarter: 2024Q4

REPORT INFORMATION
  Report Type: Spontaneous
  Country: CA (occurrence: CA)
  Receive Date: 20241229
  Receipt Date: 20241229
  Transmission Date: 20250114
  Serious: Yes (Life-Threatening, Other)
  Sender: BRISTOL-MYERS SQUIBB COMPANY
  Company Number: CA-BRISTOL-MYERS SQUIBB COMPANY-2024-199040

PATIENT
  Age: 86 Year
  Sex: Male
  Weight: 98 kg

DRUGS (20)
  1. ELIQUIS [Suspect]
     Active Substance: APIXABAN
     Indication: Atrial fibrillation
     Dosage: 49 DAYS
     Route: 048
  2. AMLODIPINE [Concomitant]
     Active Substance: AMLODIPINE BESYLATE
  3. CALCIUM [Concomitant]
     Active Substance: CALCIUM
  4. DULOXETINE [Concomitant]
     Active Substance: DULOXETINE
     Dosage: DELAYED RELEASE
     Route: 048
  5. DUTASTERIDE [Concomitant]
     Active Substance: DUTASTERIDE
     Route: 048
  6. FERROUS SULPHATE [FERROUS SULFATE;FOLIC ACID] [Concomitant]
  7. FLUTICASONE [Concomitant]
     Active Substance: FLUTICASONE
     Dosage: SPRAY, METERED DOSE
  8. FUROSEMIDE [Concomitant]
     Active Substance: FUROSEMIDE
  9. HYDROXYZINE [Concomitant]
     Active Substance: HYDROXYZINE HYDROCHLORIDE
  10. OLODATEROL HYDROCHLORIDE\TIOTROPIUM BROMIDE MONOHYDRATE [Concomitant]
     Active Substance: OLODATEROL HYDROCHLORIDE\TIOTROPIUM BROMIDE MONOHYDRATE
     Dosage: FOR ORAL INHALATION WITH INSPIOLTO RESPIMAT INHALER
  11. METOPROLOL [Concomitant]
     Active Substance: METOPROLOL
  12. NALTREXONE [Concomitant]
     Active Substance: NALTREXONE
  13. NICOTINE [Concomitant]
     Active Substance: NICOTINE
  14. FISH OIL [Concomitant]
     Active Substance: FISH OIL
  15. PANTOPRAZOLE [Concomitant]
     Active Substance: PANTOPRAZOLE
     Dosage: POWDER FOR SOLUTION INTRAVENOUS
     Route: 042
  16. POTASSIUM [Concomitant]
     Active Substance: POTASSIUM
     Route: 042
  17. RAMIPRIL [Concomitant]
     Active Substance: RAMIPRIL
  18. ROSUVASTATIN [Concomitant]
     Active Substance: ROSUVASTATIN
  19. TAMSULOSIN [Concomitant]
     Active Substance: TAMSULOSIN
  20. VENTOLIN [Concomitant]
     Active Substance: ALBUTEROL SULFATE
     Route: 055

REACTIONS (1)
  - Anaemia [Recovered/Resolved]
